FAERS Safety Report 6015586-3 (Version None)
Quarter: 2008Q4

REPORT INFORMATION
  Report Type: 
  Country: None (occurrence: None)
  Receive Date: 20081219
  Receipt Date: 20081219
  Transmission Date: 20090506
  Serious: No
  Sender: FDA-Public Use
  Company Number: None

PATIENT
  Age: 28 Year
  Sex: Female
  Weight: 58.9676 kg

DRUGS (2)
  1. PAROXETINE HCL [Suspect]
     Indication: SOCIAL PHOBIA
     Dosage: 30MG QD PO
     Route: 048
     Dates: start: 20020301, end: 20071201
  2. CITALOPRAM HYDROBROMIDE [Suspect]
     Indication: SOCIAL PHOBIA
     Dosage: 20MG QD PO
     Route: 048
     Dates: start: 20071201, end: 20080301

REACTIONS (6)
  - APATHY [None]
  - EMOTIONAL DISORDER [None]
  - FRUSTRATION [None]
  - LOSS OF LIBIDO [None]
  - MARITAL PROBLEM [None]
  - SOCIAL PROBLEM [None]
